FAERS Safety Report 17955532 (Version 1)
Quarter: 2020Q2

REPORT INFORMATION
  Report Type: Spontaneous
  Country: FR (occurrence: FR)
  Receive Date: 20200629
  Receipt Date: 20200629
  Transmission Date: 20200714
  Serious: Yes (Other)
  Sender: FDA-Public Use
  Company Number: FR-ACCORD-187256

PATIENT
  Age: 43 Year
  Sex: Male
  Weight: 85 kg

DRUGS (7)
  1. GENTAMICIN. [Concomitant]
     Active Substance: GENTAMICIN
     Route: 042
     Dates: start: 20200221, end: 20200223
  2. OXYNORMORO [Concomitant]
     Active Substance: OXYCODONE HYDROCHLORIDE
     Dosage: STRENGTH: 10 MG
     Route: 048
     Dates: start: 20200222, end: 20200222
  3. PARACETAMOL [Concomitant]
     Active Substance: ACETAMINOPHEN
     Route: 048
     Dates: start: 20200221
  4. DROPERIDOL/DROPERIDOL LACTATE [Concomitant]
     Active Substance: DROPERIDOL
     Route: 042
     Dates: start: 20200221, end: 20200223
  5. ROPIVACAINE. [Concomitant]
     Active Substance: ROPIVACAINE HYDROCHLORIDE
     Route: 042
     Dates: start: 20200221, end: 20200222
  6. DAPTOMYCIN ACCORD [Suspect]
     Active Substance: DAPTOMYCIN
     Indication: INFECTION
     Route: 042
     Dates: start: 20200121, end: 20200226
  7. LOVENOX [Concomitant]
     Active Substance: ENOXAPARIN SODIUM
     Dosage: STRENGTH: 4,000 IU ANTI-XA / 0.4 ML,SOLUTION FOR INJECTION IN A CARTRIDGE
     Route: 058
     Dates: start: 20200221, end: 20200222

REACTIONS (2)
  - Hepatocellular injury [Not Recovered/Not Resolved]
  - Cholestasis [Not Recovered/Not Resolved]

NARRATIVE: CASE EVENT DATE: 20200225
